FAERS Safety Report 9773188 (Version 1)
Quarter: 2013Q4

REPORT INFORMATION
  Report Type: Spontaneous
  Country: US (occurrence: None)
  Receive Date: 20131217
  Receipt Date: 20131217
  Transmission Date: 20140711
  Serious: Yes (Hospitalization)
  Sender: FDA-Public Use
  Company Number: 2009S1006316

PATIENT
  Age: 69 Year
  Sex: Female
  Weight: 71.67 kg

DRUGS (6)
  1. SODIUM PHOSPHATE DIBASIC/SODIUM PHOSPHATE MONOBASIC [Suspect]
     Indication: COLONOSCOPY
  2. NORVASC (AMLODIPINE BESILATE) (25 MILLIGRAM) [Concomitant]
  3. AVAPRO (IRBESARTAN) (300 MILLIGRAM) [Concomitant]
  4. VYTORIN (SIMVASTATIN, EZETIMIBE) [Concomitant]
  5. PRIMETHAZINE (PROMETHAZINE) (50 MILLIGRAM) [Concomitant]
  6. IRON SHOTS (IRON) [Concomitant]

REACTIONS (11)
  - Blood urea increased [None]
  - Hyperparathyroidism [None]
  - Macrocytosis [None]
  - Nausea [None]
  - Vomiting [None]
  - Renal cyst [None]
  - Renal tubular necrosis [None]
  - Dehydration [None]
  - Azotaemia [None]
  - Normochromic normocytic anaemia [None]
  - Renal failure chronic [None]
